FAERS Safety Report 18307822 (Version 7)
Quarter: 2020Q4

REPORT INFORMATION
  Report Type: Spontaneous
  Country: DE (occurrence: DE)
  Receive Date: 20200924
  Receipt Date: 20201214
  Transmission Date: 20210113
  Serious: Yes (Other)
  Sender: FDA-Public Use
  Company Number: DE-009507513-2009DEU008721

PATIENT
  Age: 36 Year
  Sex: Female

DRUGS (8)
  1. GONADORELIN ACETATE [Suspect]
     Active Substance: GONADORELIN ACETATE
     Indication: ASSISTED REPRODUCTIVE TECHNOLOGY
     Dosage: 0.1 MILLIGRAM IN 1 DAY (1 D), 1.-11. CYCLE DAY
     Route: 065
     Dates: start: 20200416
  2. GONADORELIN ACETATE [Suspect]
     Active Substance: GONADORELIN ACETATE
     Dosage: UNK
     Route: 065
     Dates: start: 20200403
  3. GONADOTROPIN, CHORIONIC [Suspect]
     Active Substance: CHORIOGONADOTROPIN ALFA
     Indication: OVULATION INDUCTION
     Dosage: 5000 (IU)
     Route: 065
     Dates: start: 20200426, end: 20200426
  4. GONADOTROPIN, CHORIONIC [Suspect]
     Active Substance: CHORIOGONADOTROPIN ALFA
     Indication: OVULATION INDUCTION
     Dosage: 5000 (IU); CHORIONIC GONADOTROPIN (BREVACTID), POWDER AND SOLVENT FOR SOLUTION FOR INJECTION
     Route: 058
     Dates: start: 20200426, end: 20200426
  5. PROGESTERONE. [Suspect]
     Active Substance: PROGESTERONE
     Indication: ASSISTED REPRODUCTIVE TECHNOLOGY
     Dosage: 600 MG IN 1 DAY (1 D)
     Route: 067
  6. MENOTROPINS [Suspect]
     Active Substance: MENOTROPINS
     Indication: ASSISTED REPRODUCTIVE TECHNOLOGY
     Dosage: 150 (IU) IN 1 DAY, 1.-11. CYCLE DAY; FOLLICLE STIMULATINH HORMONE (FSH)
     Route: 065
     Dates: start: 20200416
  7. MENOTROPINS [Suspect]
     Active Substance: MENOTROPINS
     Dosage: 75 IE 1.-10. CYCLE DAY, 1 DF IN 1 DAY, HMG (HUMAN MENOPAUSAL GONADOTROPHIN)
     Route: 065
     Dates: start: 20200416
  8. MENOGON [Suspect]
     Active Substance: MENOTROPINS
     Indication: ASSISTED REPRODUCTIVE TECHNOLOGY
     Dosage: 1-10 CYCLE DAY, 1 (DF) IN 1 DAY (1 IN 1 D); MENOTROPHIN (MENOGON HP), POWDER AND SOLVENT FOR SOLUTIO
     Route: 058
     Dates: start: 20200416

REACTIONS (2)
  - Ascites [Recovered/Resolved]
  - Ovarian hyperstimulation syndrome [Recovered/Resolved]

NARRATIVE: CASE EVENT DATE: 20200512
